FAERS Safety Report 24327982 (Version 2)
Quarter: 2024Q4

REPORT INFORMATION
  Report Type: Spontaneous
  Country: CA (occurrence: CA)
  Receive Date: 20240917
  Receipt Date: 20241113
  Transmission Date: 20250115
  Serious: Yes (Other)
  Sender: PFIZER
  Company Number: CA-PFIZER INC-202400062562

PATIENT
  Age: 36 Year
  Sex: Female

DRUGS (3)
  1. ABRILADA [Suspect]
     Active Substance: ADALIMUMAB-AFZB
     Indication: Ankylosing spondylitis
     Dosage: EVERY 2 WEEKS
     Route: 058
     Dates: start: 20240311
  2. ABRILADA [Suspect]
     Active Substance: ADALIMUMAB-AFZB
     Dosage: EVERY 2 WEEKS
     Route: 058
     Dates: start: 20240909
  3. CELECOXIB [Concomitant]
     Active Substance: CELECOXIB
     Dosage: 1 DF
     Dates: start: 202309

REACTIONS (4)
  - Immunodeficiency [Unknown]
  - Bronchitis [Not Recovered/Not Resolved]
  - Condition aggravated [Recovering/Resolving]
  - Influenza [Recovered/Resolved]

NARRATIVE: CASE EVENT DATE: 20240101
